FAERS Safety Report 9102802 (Version 1)
Quarter: 2013Q1

REPORT INFORMATION
  Report Type: Spontaneous
  Country: US (occurrence: US)
  Receive Date: 20130220
  Receipt Date: 20130220
  Transmission Date: 20140127
  Serious: Yes (Hospitalization, Other)
  Sender: FDA-Public Use
  Company Number: US-TEVA-386843USA

PATIENT
  Sex: Male

DRUGS (1)
  1. CILOSTAZOL [Suspect]
     Dates: start: 2013

REACTIONS (3)
  - Dizziness [Unknown]
  - Nausea [Unknown]
  - Cardiac pacemaker insertion [Unknown]
